FAERS Safety Report 12613945 (Version 1)
Quarter: 2016Q3

REPORT INFORMATION
  Report Type: Spontaneous
  Country: US (occurrence: None)
  Receive Date: 20160801
  Receipt Date: 20160801
  Transmission Date: 20161109
  Serious: Yes (Other)
  Sender: FDA-Public Use
  Company Number: None

PATIENT
  Age: 51 Year
  Sex: Female
  Weight: 113.4 kg

DRUGS (14)
  1. VICTOZA [Suspect]
     Active Substance: LIRAGLUTIDE
     Indication: DIABETES MELLITUS
     Dosage: 1 INJECTION(S)  INJECTED FATTY AREAS
  2. LOSARTAN. [Concomitant]
     Active Substance: LOSARTAN
  3. LEVIMER [Concomitant]
  4. EXCREDIN [Concomitant]
  5. FENOFIBRATE. [Concomitant]
     Active Substance: FENOFIBRATE
  6. AMLODIPINE [Concomitant]
     Active Substance: AMLODIPINE BESYLATE
  7. SYNTHROID [Concomitant]
     Active Substance: LEVOTHYROXINE SODIUM
  8. VITAMIN D (ERGOCAL) [Concomitant]
  9. IBUPROFEN. [Concomitant]
     Active Substance: IBUPROFEN
  10. ANTIHISTAMINE [Concomitant]
     Active Substance: UNSPECIFIED INGREDIENT
  11. CPAP MACHINGE [Concomitant]
  12. METOPROLOL SUCC [Concomitant]
     Active Substance: METOPROLOL SUCCINATE
  13. HCTZ [Concomitant]
     Active Substance: HYDROCHLOROTHIAZIDE
  14. NOVOLOG [Concomitant]
     Active Substance: INSULIN ASPART

REACTIONS (1)
  - Thyroid cancer [None]

NARRATIVE: CASE EVENT DATE: 20140908
